FAERS Safety Report 7002218-0 (Version None)
Quarter: 2010Q3

REPORT INFORMATION
  Report Type: 
  Country: None (occurrence: None)
  Receive Date: 20100920
  Receipt Date: 20070913
  Transmission Date: 20110219
  Serious: Yes (Other)
  Sender: FDA-Public Use
  Company Number: US-ASTRAZENECA-2006UW08493

PATIENT
  Age: 15685 Day
  Sex: Female
  Weight: 89.9 kg

DRUGS (5)
  1. SEROQUEL [Suspect]
     Dosage: 200 MG TO 600 MG
     Route: 048
     Dates: start: 20010329, end: 20041020
  2. RISPERDAL [Concomitant]
     Dosage: 0.5 MG TO 1 MG
     Route: 048
     Dates: start: 20010123, end: 20010329
  3. PROZAC [Concomitant]
     Dosage: 40 MG TO 80 MG
     Dates: start: 20010130
  4. BENADRYL [Concomitant]
     Indication: SLEEP DISORDER
     Dates: start: 20010329
  5. TRAZODONE HCL [Concomitant]
     Dates: start: 20010130

REACTIONS (2)
  - DIABETES MELLITUS [None]
  - NEUROPATHY PERIPHERAL [None]
